FAERS Safety Report 19642535 (Version 3)
Quarter: 2024Q3

REPORT INFORMATION
  Report Type: Report from Study
  Country: US (occurrence: US)
  Receive Date: 20210730
  Receipt Date: 20240916
  Transmission Date: 20241017
  Serious: No
  Sender: NOVARTIS
  Company Number: NVSC2021US162509

PATIENT
  Sex: Female

DRUGS (2)
  1. COSENTYX [Suspect]
     Active Substance: SECUKINUMAB
     Indication: Psoriasis
     Dosage: UNK
     Route: 065
  2. COSENTYX [Suspect]
     Active Substance: SECUKINUMAB
     Dosage: 150MGX2
     Route: 065

REACTIONS (2)
  - Therapeutic product effect incomplete [Unknown]
  - Psoriasis [Unknown]
